FAERS Safety Report 22596939 (Version 1)
Quarter: 2023Q2

REPORT INFORMATION
  Report Type: Spontaneous
  Country: US (occurrence: US)
  Receive Date: 20230613
  Receipt Date: 20230613
  Transmission Date: 20230722
  Serious: Yes (Death, Other)
  Sender: FDA-Public Use
  Company Number: US-FreseniusKabi-FK202308537

PATIENT
  Age: 36 Year
  Sex: Female

DRUGS (3)
  1. DEXAMETHASONE [Suspect]
     Active Substance: DEXAMETHASONE
     Indication: COVID-19
  2. TOCILIZUMAB [Suspect]
     Active Substance: TOCILIZUMAB
     Indication: Product used for unknown indication
     Dosage: ONE DOSE
  3. REMDESIVIR [Concomitant]
     Active Substance: REMDESIVIR
     Indication: COVID-19
     Route: 042

REACTIONS (4)
  - Pulmonary trichosporonosis [Fatal]
  - Pneumonia fungal [Fatal]
  - Fungal infection [Fatal]
  - Immunosuppression [Unknown]
